FAERS Safety Report 6492735-4 (Version None)
Quarter: 2009Q4

REPORT INFORMATION
  Report Type: 
  Country: None (occurrence: None)
  Receive Date: 20091209
  Receipt Date: 20091202
  Transmission Date: 20100525
  Serious: Yes (Other)
  Sender: FDA-Public Use
  Company Number: A0833552A

PATIENT
  Sex: Female

DRUGS (1)
  1. UREA PEROXIDE [Suspect]
     Indication: DRUG USE FOR UNKNOWN INDICATION
     Dosage: SEE DOSAGE TEXT / AURAL

REACTIONS (5)
  - DEAFNESS UNILATERAL [None]
  - DIZZINESS [None]
  - EAR DISCOMFORT [None]
  - EAR HAEMORRHAGE [None]
  - NO THERAPEUTIC RESPONSE [None]
